FAERS Safety Report 7769639-X (Version None)
Quarter: 2011Q3

REPORT INFORMATION
  Report Type: 
  Country: None (occurrence: None)
  Receive Date: 20110922
  Receipt Date: 20110322
  Transmission Date: 20111222
  Serious: No
  Sender: FDA-Public Use
  Company Number: US-ASTRAZENECA-2011SE16471

PATIENT
  Age: 53 Year
  Sex: Female
  Weight: 54.4 kg

DRUGS (5)
  1. SEROQUEL XR [Suspect]
     Indication: BIPOLAR DISORDER
     Route: 048
  2. AMBIEN [Concomitant]
     Indication: INSOMNIA
  3. SEROQUEL XR [Suspect]
     Indication: TACHYPHRENIA
     Route: 048
  4. SEROQUEL XR [Suspect]
     Indication: POST-TRAUMATIC STRESS DISORDER
     Route: 048
  5. LAMICTAL [Concomitant]
     Indication: BIPOLAR DISORDER

REACTIONS (1)
  - RENAL PAIN [None]
